FAERS Safety Report 19518646 (Version 1)
Quarter: 2021Q3

REPORT INFORMATION
  Report Type: Spontaneous
  Country: US (occurrence: US)
  Receive Date: 20210712
  Receipt Date: 20210712
  Transmission Date: 20211014
  Serious: No
  Sender: FDA-Public Use
  Company Number: US-ALLERGAN-2117946US

PATIENT
  Sex: Female

DRUGS (2)
  1. NURTEC ODT [Concomitant]
     Active Substance: RIMEGEPANT SULFATE
     Indication: PRODUCT USED FOR UNKNOWN INDICATION
  2. UBRELVY [Suspect]
     Active Substance: UBROGEPANT
     Indication: PRODUCT USED FOR UNKNOWN INDICATION

REACTIONS (1)
  - Fatigue [Unknown]
